FAERS Safety Report 19578025 (Version 1)
Quarter: 2021Q3

REPORT INFORMATION
  Report Type: Spontaneous
  Country: US (occurrence: US)
  Receive Date: 20210719
  Receipt Date: 20210719
  Transmission Date: 20211014
  Serious: No
  Sender: FDA-Public Use
  Company Number: US-AMNEAL PHARMACEUTICALS-2020-AMRX-03620

PATIENT
  Sex: Female
  Weight: 49.9 kg

DRUGS (1)
  1. ESTRADIOL. [Suspect]
     Active Substance: ESTRADIOL
     Indication: VULVOVAGINAL DRYNESS
     Dosage: 2 DOSAGE FORM, 1 /WEEK
     Route: 067
     Dates: end: 20200830

REACTIONS (1)
  - Therapeutic product effect decreased [Unknown]
